FAERS Safety Report 13768301 (Version 8)
Quarter: 2018Q4

REPORT INFORMATION
  Report Type: Report from Study
  Country: CA (occurrence: CA)
  Receive Date: 20170719
  Receipt Date: 20181230
  Transmission Date: 20190204
  Serious: Yes (Other)
  Sender: FDA-Public Use
  Company Number: CA-BRISTOL-MYERS SQUIBB COMPANY-BMS-2017-062673

PATIENT
  Age: 66 Year
  Sex: Female

DRUGS (1)
  1. ABATACEPT [Suspect]
     Active Substance: ABATACEPT
     Indication: RHEUMATOID ARTHRITIS
     Dosage: 750 MG, Q4WK
     Route: 042
     Dates: start: 20151214

REACTIONS (8)
  - Pneumonia [Recovering/Resolving]
  - Myalgia [Unknown]
  - Erythema [Unknown]
  - Feeling hot [Unknown]
  - Bone pain [Unknown]
  - Lung carcinoma cell type unspecified stage I [Unknown]
  - Oedema [Unknown]
  - Osteoporosis [Unknown]

NARRATIVE: CASE EVENT DATE: 20181216
